FAERS Safety Report 7671178-1 (Version None)
Quarter: 2011Q3

REPORT INFORMATION
  Report Type: 
  Country: None (occurrence: None)
  Receive Date: 20110808
  Receipt Date: 20110808
  Transmission Date: 20111222
  Serious: Yes (Hospitalization)
  Sender: FDA-Public Use
  Company Number: None

PATIENT
  Sex: Female
  Weight: 116 kg

DRUGS (2)
  1. CARBOPLATIN [Suspect]
     Indication: BREAST CANCER
     Dosage: 469 MG Q 3WKS IV
     Route: 042
     Dates: start: 20110722
  2. ABRAXANE [Suspect]
     Indication: BREAST CANCER
     Dosage: 220 MG WEEKLY IV
     Route: 042
     Dates: start: 20110722

REACTIONS (7)
  - GASTROOESOPHAGEAL REFLUX DISEASE [None]
  - RENAL FAILURE ACUTE [None]
  - DEHYDRATION [None]
  - DYSGEUSIA [None]
  - WEIGHT DECREASED [None]
  - DECREASED APPETITE [None]
  - ANAEMIA [None]
